FAERS Safety Report 12974473 (Version 1)
Quarter: 2016Q4

REPORT INFORMATION
  Report Type: Spontaneous
  Country: US (occurrence: US)
  Receive Date: 20161125
  Receipt Date: 20161125
  Transmission Date: 20170207
  Serious: Yes (Death, Hospitalization)
  Sender: FDA-Public Use
  Company Number: US-AXELLIA-001002

PATIENT
  Age: 43 Year
  Sex: Male

DRUGS (6)
  1. AMPHOTERICIN B/AMPHOTERICIN B/LIPOSOME [Suspect]
     Active Substance: AMPHOTERICIN B
     Indication: ENDOPHTHALMITIS
  2. CIPROFLOXACIN/CIPROFLOXACIN HYDROCHLORIDE/CIPROFLOXACIN LACTATE [Suspect]
     Active Substance: CIPROFLOXACIN
     Indication: ENDOPHTHALMITIS
     Route: 061
  3. NATAMYCIN [Suspect]
     Active Substance: NATAMYCIN
     Indication: ENDOPHTHALMITIS
  4. VANCOMYCIN [Suspect]
     Active Substance: VANCOMYCIN
     Indication: ENDOPHTHALMITIS
  5. VORICONAZOLE. [Suspect]
     Active Substance: VORICONAZOLE
     Indication: ENDOPHTHALMITIS
     Route: 042
  6. CEFAZOLIN [Suspect]
     Active Substance: CEFAZOLIN
     Indication: ENDOPHTHALMITIS
     Dosage: INTRAVITREAL

REACTIONS (5)
  - Cerebral haemorrhage [Fatal]
  - Cerebellar haemorrhage [Fatal]
  - Septic embolus [Fatal]
  - Treatment failure [Unknown]
  - Fungal infection [Fatal]
